FAERS Safety Report 11359364 (Version 1)
Quarter: 2015Q3

REPORT INFORMATION
  Report Type: Spontaneous
  Country: US (occurrence: None)
  Receive Date: 20150722
  Receipt Date: 20150722
  Transmission Date: 20151125
  Serious: Yes (Hospitalization)
  Sender: FDA-Public Use
  Company Number: 2015-000760

PATIENT
  Age: 26 Year
  Sex: Male

DRUGS (1)
  1. MESALAZINE (MESALAZINE) MODIFIED-RELEASE TABLET, 400MG [Suspect]
     Active Substance: MESALAMINE
     Indication: CROHN^S DISEASE
     Route: 048
     Dates: start: 200603, end: 201209

REACTIONS (5)
  - Glomerulosclerosis [None]
  - Chronic kidney disease [None]
  - Kidney fibrosis [None]
  - Tubulointerstitial nephritis [None]
  - Nephropathy toxic [None]

NARRATIVE: CASE EVENT DATE: 201209
